FAERS Safety Report 25247332 (Version 2)
Quarter: 2025Q2

REPORT INFORMATION
  Report Type: Report from Study
  Country: DE (occurrence: DE)
  Receive Date: 20250428
  Receipt Date: 20250523
  Transmission Date: 20250716
  Serious: No
  Sender: TG THERAPEUTICS
  Company Number: DE-TG THERAPEUTICS INC.-TGT004844

PATIENT

DRUGS (10)
  1. UBLITUXIMAB [Suspect]
     Active Substance: UBLITUXIMAB
     Indication: Multiple sclerosis
     Route: 042
     Dates: start: 20240924, end: 20240924
  2. UBLITUXIMAB [Suspect]
     Active Substance: UBLITUXIMAB
     Route: 042
     Dates: start: 20241008, end: 20241008
  3. UBLITUXIMAB [Suspect]
     Active Substance: UBLITUXIMAB
     Route: 042
     Dates: start: 20250327, end: 20250327
  4. CHOLECALCIFEROL [Concomitant]
     Active Substance: CHOLECALCIFEROL
     Indication: Vitamin D deficiency
     Dosage: UNK, QD
     Route: 048
     Dates: start: 202408
  5. MAGNESIUM [Concomitant]
     Active Substance: MAGNESIUM
     Indication: Mineral supplementation
     Dosage: UNK, QD
     Route: 048
     Dates: start: 202408
  6. PROGESTERONE [Concomitant]
     Active Substance: PROGESTERONE
     Indication: Menopause
     Route: 048
     Dates: start: 202406
  7. ESTRADIOL VALERATE [Concomitant]
     Active Substance: ESTRADIOL VALERATE
     Indication: Menopause
     Dosage: UNK, BID, EPICUTANEOUS
     Dates: start: 202406
  8. DOLOCTAN FORTE [Concomitant]
     Indication: Pain
     Dosage: UNK, QD, EPICUTANEOUS
     Dates: start: 202406
  9. LEVOTHYROXINE SODIUM\POTASSIUM IODIDE [Concomitant]
     Active Substance: LEVOTHYROXINE SODIUM\POTASSIUM IODIDE
     Indication: Thyroid disorder
     Dosage: 50 MICROGRAM, QD
     Route: 048
     Dates: start: 202408
  10. PROPIONIC ACID [Concomitant]
     Active Substance: PROPIONIC ACID
     Indication: Multiple sclerosis
     Route: 048
     Dates: start: 202408

REACTIONS (1)
  - Hepatic enzyme increased [Recovered/Resolved]

NARRATIVE: CASE EVENT DATE: 20241008
